FAERS Safety Report 13306236 (Version 2)
Quarter: 2017Q2

REPORT INFORMATION
  Report Type: Report from Study
  Country: US (occurrence: CA)
  Receive Date: 20170308
  Receipt Date: 20170402
  Transmission Date: 20170830
  Serious: Yes (Other)
  Sender: FDA-Public Use
  Company Number: US-SUNOVION-2017SUN000939

PATIENT
  Age: 63 Year
  Sex: Male

DRUGS (22)
  1. XOLAIR [Suspect]
     Active Substance: OMALIZUMAB
     Dosage: UNK
     Route: 058
     Dates: start: 20161124
  2. TRAVOPROST. [Suspect]
     Active Substance: TRAVOPROST
     Indication: PRODUCT USED FOR UNKNOWN INDICATION
     Dosage: 1 DF, QD
     Route: 065
  3. FLUOROMETHOLONE. [Suspect]
     Active Substance: FLUOROMETHOLONE
     Indication: PRODUCT USED FOR UNKNOWN INDICATION
     Dosage: (0.1 OT); UNK
     Route: 065
  4. APO-SALVENT [Concomitant]
     Active Substance: ALBUTEROL
  5. XOLAIR [Suspect]
     Active Substance: OMALIZUMAB
     Dosage: UNK
     Route: 058
     Dates: start: 2016
  6. XOLAIR [Suspect]
     Active Substance: OMALIZUMAB
     Dosage: UNK
     Route: 058
     Dates: start: 20170105
  7. XOLAIR [Suspect]
     Active Substance: OMALIZUMAB
     Dosage: UNK
  8. MONTELUKAST [Suspect]
     Active Substance: MONTELUKAST SODIUM
     Indication: PRODUCT USED FOR UNKNOWN INDICATION
     Dosage: 10 MG, QD
     Route: 065
  9. SIMBRINZA [Concomitant]
     Active Substance: BRIMONIDINE TARTRATE\BRINZOLAMIDE
     Dosage: UNK
  10. XOLAIR [Suspect]
     Active Substance: OMALIZUMAB
     Dosage: UNK
     Route: 058
     Dates: start: 20161208
  11. ASMANEX [Concomitant]
     Active Substance: MOMETASONE FUROATE
     Dosage: 400 ?G, UNK
  12. DEXILANT [Concomitant]
     Active Substance: DEXLANSOPRAZOLE
     Dosage: 60 MG, UNK
  13. MAXIDEX [Concomitant]
     Active Substance: DEXAMETHASONE
  14. APO-CIPROFLOX [Concomitant]
     Active Substance: CIPROFLOXACIN
  15. XOLAIR [Suspect]
     Active Substance: OMALIZUMAB
     Indication: ASTHMA
     Dosage: 375 MG, BIW
     Route: 058
     Dates: start: 20161110
  16. XOLAIR [Suspect]
     Active Substance: OMALIZUMAB
     Dosage: UNK
     Route: 058
     Dates: start: 20170209
  17. OCUFLOX [Concomitant]
     Active Substance: OFLOXACIN
     Dosage: DROPS, 0.3 GTT
  18. APO MOMETASONE [Concomitant]
     Dosage: 50 ?G, UNK
  19. CORTISONE [Concomitant]
     Active Substance: CORTISONE\HYDROCORTISONE
     Dosage: UNK
  20. INDACATEROL AND GLYCOPYRROLATE [Suspect]
     Active Substance: GLYCOPYRROLATE\INDACATEROL MALEATE
     Indication: PRODUCT USED FOR UNKNOWN INDICATION
     Dosage: 50 ?G, QD
     Route: 065
  21. XOLAIR [Suspect]
     Active Substance: OMALIZUMAB
     Dosage: UNK
     Route: 058
     Dates: start: 20170223
  22. NEVANAC [Concomitant]
     Active Substance: NEPAFENAC

REACTIONS (13)
  - Cough [Recovered/Resolved]
  - Stress [Unknown]
  - Respiratory tract infection [Not Recovered/Not Resolved]
  - Musculoskeletal pain [Unknown]
  - Blood pressure increased [Unknown]
  - Dyspnoea [Recovered/Resolved]
  - Injection site erythema [Not Recovered/Not Resolved]
  - Dysphonia [Unknown]
  - Skin disorder [Unknown]
  - Back pain [Unknown]
  - Choking [Recovered/Resolved]
  - Injection site swelling [Unknown]
  - Dyspnoea exertional [Unknown]

NARRATIVE: CASE EVENT DATE: 201611
